FAERS Safety Report 25222593 (Version 1)
Quarter: 2025Q2

REPORT INFORMATION
  Report Type: Report from Study
  Country: US (occurrence: US)
  Receive Date: 20250421
  Receipt Date: 20250421
  Transmission Date: 20250717
  Serious: Yes (Death)
  Sender: ABBVIE
  Company Number: US-ABBVIE-6242933

PATIENT
  Sex: Female

DRUGS (1)
  1. BOTOX [Suspect]
     Active Substance: ONABOTULINUMTOXINA
     Indication: Quadriplegia
     Route: 030
     Dates: start: 20241120

REACTIONS (1)
  - Death [Fatal]
